FAERS Safety Report 7256199-5 (Version None)
Quarter: 2011Q1

REPORT INFORMATION
  Report Type: 
  Country: None (occurrence: None)
  Receive Date: 20110129
  Receipt Date: 20100510
  Transmission Date: 20110831
  Serious: No
  Sender: FDA-Public Use
  Company Number: US-ABBOTT-10P-163-0643531-00

PATIENT
  Sex: Male

DRUGS (5)
  1. PAREGORIC [Concomitant]
     Indication: PRODUCT USED FOR UNKNOWN INDICATION
  2. PENTAZA [Concomitant]
     Indication: GASTROINTESTINAL DISORDER
  3. HUMIRA [Suspect]
     Indication: CROHN'S DISEASE
     Dates: start: 20100224
  4. FORADIL [Concomitant]
     Indication: PRODUCT USED FOR UNKNOWN INDICATION
  5. COMBIVANT [Concomitant]
     Indication: EMPHYSEMA

REACTIONS (1)
  - DIARRHOEA [None]
